FAERS Safety Report 7439681-7 (Version None)
Quarter: 2011Q2

REPORT INFORMATION
  Report Type: 
  Country: None (occurrence: None)
  Receive Date: 20110427
  Receipt Date: 20110414
  Transmission Date: 20111010
  Serious: Yes (Other)
  Sender: FDA-Public Use
  Company Number: PHHY2011US32926

PATIENT
  Sex: Female

DRUGS (1)
  1. RECLAST [Suspect]
     Dosage: 5 MG,
     Route: 042
     Dates: start: 20100801

REACTIONS (6)
  - MOVEMENT DISORDER [None]
  - GAIT DISTURBANCE [None]
  - HIP FRACTURE [None]
  - FALL [None]
  - BONE DISORDER [None]
  - WALKING AID USER [None]
